FAERS Safety Report 12973037 (Version 2)
Quarter: 2016Q4

REPORT INFORMATION
  Report Type: Report from Study
  Country: US (occurrence: US)
  Receive Date: 20161124
  Receipt Date: 20161223
  Transmission Date: 20170207
  Serious: Yes (Other)
  Sender: FDA-Public Use
  Company Number: US-AMGEN-USASL2016164599

PATIENT
  Age: 59 Year
  Sex: Female

DRUGS (2)
  1. NPLATE [Suspect]
     Active Substance: ROMIPLOSTIM
     Dosage: UNK
     Route: 065
     Dates: start: 201611
  2. NPLATE [Suspect]
     Active Substance: ROMIPLOSTIM
     Indication: IMMUNE THROMBOCYTOPENIC PURPURA
     Dosage: UNK
     Route: 065
     Dates: start: 2013

REACTIONS (6)
  - Aortic aneurysm [Unknown]
  - Bone marrow disorder [Unknown]
  - Surgery [Unknown]
  - Limb discomfort [Unknown]
  - Platelet count abnormal [Unknown]
  - Cataract operation [Unknown]

NARRATIVE: CASE EVENT DATE: 201610
